FAERS Safety Report 4297824-0 (Version None)
Quarter: 2004Q1

REPORT INFORMATION
  Report Type: 
  Country: None (occurrence: None)
  Receive Date: 20040213
  Receipt Date: 20040202
  Transmission Date: 20041129
  Serious: Yes (Death)
  Sender: FDA-Public Use
  Company Number: FR-JNJFOC-20040202430

PATIENT
  Age: 77 Year
  Sex: Female
  Weight: 92 kg

DRUGS (8)
  1. LEVOFLOXACIN [Suspect]
     Indication: LUNG INFECTION
     Dosage: 500 MG, 1 IN 1 DAY, ORAL
     Route: 048
  2. PREDNISOLONE [Concomitant]
  3. ALDACTAZIDE [Concomitant]
  4. AVAPRO [Concomitant]
  5. LASIX [Concomitant]
  6. FLUINDIONE (FLUINDIONE) [Concomitant]
  7. AMIODARONE HCL [Concomitant]
  8. NITROGLYCERIN [Concomitant]

REACTIONS (13)
  - ANURIA [None]
  - BRADYCARDIA [None]
  - CARDIAC ARREST [None]
  - CARDIAC FAILURE ACUTE [None]
  - CONDUCTION DISORDER [None]
  - CYTOLYTIC HEPATITIS [None]
  - HAEMODIALYSIS [None]
  - HYPERKALAEMIA [None]
  - MYOCARDIAL INFARCTION [None]
  - RENAL FAILURE ACUTE [None]
  - RESPIRATORY FAILURE [None]
  - RHABDOMYOLYSIS [None]
  - TACHYCARDIA [None]
